FAERS Safety Report 20304205 (Version 1)
Quarter: 2022Q1

REPORT INFORMATION
  Report Type: Spontaneous
  Country: US (occurrence: US)
  Receive Date: 20220106
  Receipt Date: 20220106
  Transmission Date: 20220423
  Serious: Yes (Other)
  Sender: FDA-Public Use
  Company Number: US-drreddys-LIT/USA/22/0145615

PATIENT
  Age: 80 Year
  Sex: Male

DRUGS (5)
  1. DOCETAXEL [Suspect]
     Active Substance: DOCETAXEL
     Indication: B-cell lymphoma
  2. ABIRATERONE [Suspect]
     Active Substance: ABIRATERONE
     Indication: B-cell lymphoma
  3. SIPULEUCEL-T [Suspect]
     Active Substance: SIPULEUCEL-T
     Indication: B-cell lymphoma
  4. GOSERELIN [Suspect]
     Active Substance: GOSERELIN
     Indication: B-cell lymphoma
  5. ENZALUTAMIDE [Suspect]
     Active Substance: ENZALUTAMIDE
     Indication: B-cell lymphoma

REACTIONS (6)
  - Micturition urgency [Unknown]
  - Urinary hesitation [Unknown]
  - Erectile dysfunction [Unknown]
  - Disease progression [Unknown]
  - Haematuria [Unknown]
  - Treatment failure [Unknown]
